FAERS Safety Report 7711829 (Version 13)
Quarter: 2013Q4

REPORT INFORMATION
  Report Type: Report from Study
  Country: IT (occurrence: IT)
  Receive Date: 20101215
  Receipt Date: 20131211
  Transmission Date: 20140711
  Serious: Yes (Hospitalization, Other)
  Sender: FDA-Public Use
  Company Number: IT-ROCHE-741874

PATIENT
  Age: 9 Year
  Sex: Female
  Weight: 42 kg

DRUGS (10)
  1. TOCILIZUMAB [Suspect]
     Indication: CASTLEMAN^S DISEASE
     Route: 042
     Dates: start: 20100930, end: 20110302
  2. TOCILIZUMAB [Suspect]
     Route: 042
  3. TOCILIZUMAB [Suspect]
     Route: 042
     Dates: start: 20100331, end: 20121126
  4. TOCILIZUMAB [Suspect]
     Route: 042
  5. TOCILIZUMAB [Suspect]
     Route: 042
     Dates: start: 20100331, end: 20130726
  6. TOCILIZUMAB [Suspect]
     Route: 042
  7. PARACETAMOL [Concomitant]
     Indication: HEADACHE
     Dosage: ROUTE: ENDORETTAL
     Route: 065
     Dates: start: 20110303, end: 20110413
  8. PARACETAMOL [Concomitant]
     Route: 065
     Dates: start: 20110413, end: 20110608
  9. TOPAMAX [Concomitant]
     Indication: HEADACHE
     Route: 048
     Dates: start: 20110303, end: 20110331
  10. IBUPROFENE [Concomitant]
     Indication: HEADACHE
     Dosage: IF PAIN
     Route: 065
     Dates: start: 20131009

REACTIONS (4)
  - Migraine [Recovered/Resolved]
  - Pachymeningitis [Recovered/Resolved]
  - Headache [Recovering/Resolving]
  - Abdominal pain upper [Recovered/Resolved]
